FAERS Safety Report 9742746 (Version 3)
Quarter: 2015Q3

REPORT INFORMATION
  Report Type: Spontaneous
  Country: US (occurrence: US)
  Receive Date: 20131210
  Receipt Date: 20150805
  Transmission Date: 20151125
  Serious: No
  Sender: FDA-Public Use
  Company Number: US-GILEAD-2009-0025963

PATIENT
  Age: 66 Year
  Sex: Female
  Weight: 49.89 kg

DRUGS (10)
  1. LETAIRIS [Suspect]
     Active Substance: AMBRISENTAN
     Route: 048
     Dates: start: 20091117
  2. OMEPRAZOLE. [Concomitant]
     Active Substance: OMEPRAZOLE
  3. MUCINEX [Concomitant]
     Active Substance: GUAIFENESIN
  4. SEREVENT DISKUS [Concomitant]
     Active Substance: SALMETEROL XINAFOATE
  5. CITRACAL+D [Concomitant]
  6. LETAIRIS [Suspect]
     Active Substance: AMBRISENTAN
     Indication: PULMONARY ARTERIAL HYPERTENSION
     Route: 048
  7. GABAPENTIN. [Concomitant]
     Active Substance: GABAPENTIN
  8. NIFEDICAL XL [Concomitant]
     Active Substance: NIFEDIPINE
  9. BENZONATATE. [Concomitant]
     Active Substance: BENZONATATE
  10. ASA LO-DOSE [Concomitant]

REACTIONS (1)
  - Peripheral swelling [Recovered/Resolved]

NARRATIVE: CASE EVENT DATE: 20091202
